FAERS Safety Report 20010790 (Version 1)
Quarter: 2021Q4

REPORT INFORMATION
  Report Type: Spontaneous
  Country: US (occurrence: US)
  Receive Date: 20211029
  Receipt Date: 20211029
  Transmission Date: 20220303
  Serious: Yes (Other)
  Sender: FDA-Public Use
  Company Number: US-GLAXOSMITHKLINE-US2021GSK224362

PATIENT
  Sex: Female

DRUGS (7)
  1. ZANTAC [Suspect]
     Active Substance: RANITIDINE HYDROCHLORIDE
     Indication: Dyspepsia
     Dosage: UNK, SEVERAL TIMES A DAY
     Route: 065
     Dates: start: 201101, end: 201812
  2. ZANTAC [Suspect]
     Active Substance: RANITIDINE HYDROCHLORIDE
     Indication: Dyspepsia
     Dosage: UNK, SEVERAL TIMES A DAY
     Route: 065
     Dates: start: 201101, end: 201812
  3. RANITIDINE HYDROCHLORIDE [Suspect]
     Active Substance: RANITIDINE HYDROCHLORIDE
     Indication: Dyspepsia
     Dosage: UNK, SEVERAL TIMES A DAY
     Route: 065
     Dates: start: 201101, end: 201812
  4. RANITIDINE HYDROCHLORIDE [Suspect]
     Active Substance: RANITIDINE HYDROCHLORIDE
     Indication: Dyspepsia
     Dosage: UNK, SEVERAL TIMES A DAY
     Route: 065
     Dates: start: 201101, end: 201812
  5. RANITIDINE [Suspect]
     Active Substance: RANITIDINE
     Indication: Dyspepsia
     Dosage: UNK, SEVERAL TIMES A DAY
     Route: 065
     Dates: start: 201101, end: 201812
  6. RANITIDINE [Suspect]
     Active Substance: RANITIDINE
     Indication: Dyspepsia
     Dosage: UNK, SEVERAL TIMES A DAY
     Route: 065
     Dates: start: 201101, end: 201812
  7. ZANTAC [Suspect]
     Active Substance: RANITIDINE HYDROCHLORIDE
     Indication: Dyspepsia
     Dosage: UNK, SEVERAL TIMES A DAY
     Route: 065
     Dates: start: 201101, end: 201812

REACTIONS (1)
  - Colorectal cancer [Unknown]
